FAERS Safety Report 6309610-8 (Version None)
Quarter: 2009Q3

REPORT INFORMATION
  Report Type: 
  Country: None (occurrence: None)
  Receive Date: 20090811
  Receipt Date: 20090619
  Transmission Date: 20100115
  Serious: No
  Sender: FDA-Public Use
  Company Number: 1000006939

PATIENT
  Age: 45 Year
  Sex: Female

DRUGS (6)
  1. SAVELLA [Suspect]
     Indication: FIBROMYALGIA
     Dosage: 12.5 MG (12.5 MG, 1 IN 1 D), ORAL; 25 MG (12.5 MG, 2 IN 1 D), ORAL
     Route: 048
     Dates: start: 20090617, end: 20090617
  2. SAVELLA [Suspect]
     Indication: FIBROMYALGIA
     Dosage: 12.5 MG (12.5 MG, 1 IN 1 D), ORAL; 25 MG (12.5 MG, 2 IN 1 D), ORAL
     Route: 048
     Dates: start: 20090618
  3. CYMBALTA [Suspect]
     Indication: FIBROMYALGIA
     Dosage: 12.5 MG (12. 5 MG, 1 IN  1 D), ORAL; 120 MG (60 MG, 2 IN 1 D), ORAL
     Route: 048
     Dates: start: 20090519, end: 20090601
  4. CYMBALTA [Suspect]
     Indication: FIBROMYALGIA
     Dosage: 12.5 MG (12. 5 MG, 1 IN  1 D), ORAL; 120 MG (60 MG, 2 IN 1 D), ORAL
     Route: 048
     Dates: start: 20090602, end: 20090616
  5. LIPITOR (10 MILLIGRAM) [Concomitant]
  6. LOVAZA [Concomitant]

REACTIONS (6)
  - BLOOD PRESSURE INCREASED [None]
  - CHILLS [None]
  - DRY MOUTH [None]
  - FLUSHING [None]
  - HEADACHE [None]
  - NIGHT SWEATS [None]
